FAERS Safety Report 8154643-2 (Version None)
Quarter: 2012Q1

REPORT INFORMATION
  Report Type: 
  Country: None (occurrence: None)
  Receive Date: 20120221
  Receipt Date: 20120215
  Transmission Date: 20120608
  Serious: Yes (Other)
  Sender: FDA-Public Use
  Company Number: US-PFIZER INC-2012042320

PATIENT
  Sex: Male

DRUGS (6)
  1. LYRICA [Suspect]
     Dosage: UNK
  2. FENTANYL [Suspect]
     Indication: PAIN
     Dosage: UNK
  3. AMBIEN [Suspect]
     Indication: SLEEP DISORDER
     Dosage: UNK
  4. ATENOLOL [Suspect]
     Dosage: UNK
  5. NEURONTIN [Suspect]
     Dosage: UNK
  6. VICODIN [Suspect]
     Indication: PAIN
     Dosage: UNK (6 TIMES A DAY)

REACTIONS (4)
  - PARALYSIS [None]
  - DRUG INEFFECTIVE [None]
  - PAIN [None]
  - MEMORY IMPAIRMENT [None]
